FAERS Safety Report 5026307-5 (Version None)
Quarter: 2006Q2

REPORT INFORMATION
  Report Type: 
  Country: None (occurrence: None)
  Receive Date: 20060615
  Receipt Date: 20060515
  Transmission Date: 20061013
  Serious: Yes (Hospitalization)
  Sender: FDA-Public Use
  Company Number: 2006UW12450

PATIENT
  Age: 52 Year
  Sex: Male

DRUGS (2)
  1. NEXIUM [Suspect]
     Indication: REFLUX OESOPHAGITIS
     Route: 048
     Dates: start: 20060303, end: 20060513
  2. NEXIUM [Suspect]
     Route: 048
     Dates: start: 20060604

REACTIONS (6)
  - ABDOMINAL PAIN [None]
  - CHOLELITHIASIS [None]
  - DRUG INEFFECTIVE [None]
  - NAUSEA [None]
  - RASH ERYTHEMATOUS [None]
  - RASH PRURITIC [None]
